FAERS Safety Report 18717322 (Version 1)
Quarter: 2021Q1

REPORT INFORMATION
  Report Type: Spontaneous
  Country: US (occurrence: US)
  Receive Date: 20210108
  Receipt Date: 20210108
  Transmission Date: 20210419
  Serious: No
  Sender: FDA-Public Use
  Company Number: US-AMNEAL PHARMACEUTICALS-2020-AMRX-03504

PATIENT
  Sex: Male

DRUGS (5)
  1. LEVOTHYROXINE. [Concomitant]
     Active Substance: LEVOTHYROXINE
     Indication: CONGENITAL HYPOTHYROIDISM
     Dosage: UNK
     Route: 065
  2. VIGABATRIN. [Suspect]
     Active Substance: VIGABATRIN
     Indication: INFANTILE SPASMS
     Dosage: 250 MILLIGRAM, 2 /DAY
     Route: 048
     Dates: start: 20201016, end: 202010
  3. VIGABATRIN. [Suspect]
     Active Substance: VIGABATRIN
     Dosage: 750 MILLIGRAM, 2 /DAY, 2 PACKETS IN 20ML OF WATER AND GIVE/TAKE 15ML TWICE DAILY THEREAFTER
     Route: 048
     Dates: start: 2020, end: 20201104
  4. SABRIL [Concomitant]
     Active Substance: VIGABATRIN
     Indication: PRODUCT USED FOR UNKNOWN INDICATION
     Dosage: UNK
     Route: 065
  5. VIGABATRIN. [Suspect]
     Active Substance: VIGABATRIN
     Dosage: 500 MILLIGRAM, 2 /DAY, 1 PACKET IN 10ML OF WATER FOR 3 DAYS
     Route: 048
     Dates: start: 202010, end: 202010

REACTIONS (1)
  - Drug ineffective [Unknown]

NARRATIVE: CASE EVENT DATE: 2020
